FAERS Safety Report 4791558-1 (Version None)
Quarter: 2005Q4

REPORT INFORMATION
  Report Type: 
  Country: None (occurrence: None)
  Receive Date: 20051007
  Receipt Date: 20050303
  Transmission Date: 20060501
  Serious: No
  Sender: FDA-Public Use
  Company Number: US-BRISTOL-MYERS SQUIBB COMPANY-12885455

PATIENT
  Age: 68 Year
  Sex: Female
  Weight: 86 kg

DRUGS (4)
  1. AVAPRO [Suspect]
     Route: 048
  2. VERAPAMIL [Concomitant]
  3. HYDROCHLOROTHIAZIDE [Concomitant]
     Dosage: DAILY
  4. VITAMINS [Concomitant]

REACTIONS (2)
  - DYSGEUSIA [None]
  - RETCHING [None]
